FAERS Safety Report 10221147 (Version 3)
Quarter: 2015Q4

REPORT INFORMATION
  Report Type: Report from Study
  Country: JP (occurrence: JP)
  Receive Date: 20140606
  Receipt Date: 20151001
  Transmission Date: 20160304
  Serious: Yes (Hospitalization)
  Sender: FDA-Public Use
  Company Number: JP-SA-2014SA072710

PATIENT
  Age: 25 Year
  Sex: Female
  Weight: 43.5 kg

DRUGS (12)
  1. OMEPRAL [Concomitant]
     Active Substance: OMEPRAZOLE
     Indication: PROPHYLAXIS AGAINST GASTROINTESTINAL ULCER
     Dates: start: 20100831
  2. SOLU-MEDROL [Concomitant]
     Active Substance: METHYLPREDNISOLONE SODIUM SUCCINATE
     Indication: APLASTIC ANAEMIA
     Dates: start: 20100831, end: 20100904
  3. PREDONINE [Suspect]
     Active Substance: PREDNISOLONE\PREDNISOLONE ACETATE\PREDNISOLONE SODIUM SUCCINATE
     Indication: APLASTIC ANAEMIA
     Route: 065
     Dates: start: 20100905, end: 20100923
  4. THYMOGLOBULINE [Suspect]
     Active Substance: LAPINE T-LYMPHOCYTE IMMUNE GLOBULIN
     Indication: APLASTIC ANAEMIA
     Route: 042
     Dates: start: 20100831, end: 20100904
  5. FLUCONAZOLE. [Concomitant]
     Active Substance: FLUCONAZOLE
     Indication: ANTIFUNGAL PROPHYLAXIS
     Dates: start: 20100831
  6. PRIMOBOLAN-DEPOT [Concomitant]
     Active Substance: METHENOLONE ENANTHATE
     Indication: APLASTIC ANAEMIA
     Dates: start: 20101207
  7. RED BLOOD CELLS [Concomitant]
     Active Substance: HUMAN RED BLOOD CELL
     Indication: APLASTIC ANAEMIA
     Dates: start: 20100824, end: 20110214
  8. PLATELETS [Concomitant]
     Active Substance: HUMAN PLATELET, ALLOGENIC
     Indication: APLASTIC ANAEMIA
     Dates: start: 20100824, end: 20110311
  9. ZOVIRAX [Concomitant]
     Active Substance: ACYCLOVIR
     Indication: ANTIVIRAL PROPHYLAXIS
     Dates: start: 20100831
  10. BAKTAR [Concomitant]
     Active Substance: SULFAMETHOXAZOLE\TRIMETHOPRIM
     Indication: PROPHYLAXIS
     Dates: start: 20100831
  11. GRAN [Concomitant]
     Active Substance: FILGRASTIM
     Indication: APLASTIC ANAEMIA
     Dates: start: 20100831, end: 20101013
  12. NEORAL [Suspect]
     Active Substance: CYCLOSPORINE
     Indication: APLASTIC ANAEMIA
     Route: 065
     Dates: start: 20100831

REACTIONS (4)
  - Constipation [Recovering/Resolving]
  - Febrile neutropenia [Recovering/Resolving]
  - Conjunctival haemorrhage [Recovering/Resolving]
  - Febrile neutropenia [Recovering/Resolving]

NARRATIVE: CASE EVENT DATE: 20100908
